FAERS Safety Report 6448857-7 (Version None)
Quarter: 2009Q4

REPORT INFORMATION
  Report Type: 
  Country: None (occurrence: None)
  Receive Date: 20091120
  Receipt Date: 20091110
  Transmission Date: 20100525
  Serious: Yes (Other)
  Sender: FDA-Public Use
  Company Number: US-ABBOTT-09P-163-0607945-00

PATIENT
  Sex: Female
  Weight: 112.59 kg

DRUGS (2)
  1. HUMIRA [Suspect]
     Indication: RHEUMATOID ARTHRITIS
     Route: 058
     Dates: start: 20070101, end: 20090801
  2. HUMIRA [Suspect]
     Route: 058
     Dates: start: 20091101

REACTIONS (9)
  - BACK PAIN [None]
  - BRONCHITIS [None]
  - COUGH [None]
  - FUNGAL INFECTION [None]
  - GAIT DISTURBANCE [None]
  - MOBILITY DECREASED [None]
  - NERVE COMPRESSION [None]
  - OSTEOPOROSIS [None]
  - SPINAL OSTEOARTHRITIS [None]
